FAERS Safety Report 25047718 (Version 8)
Quarter: 2025Q2

REPORT INFORMATION
  Report Type: Spontaneous
  Country: US (occurrence: US)
  Receive Date: 20250306
  Receipt Date: 20250508
  Transmission Date: 20250717
  Serious: Yes (Hospitalization, Disabling, Other)
  Sender: GILEAD
  Company Number: US-GILEAD-2025-0706172

PATIENT
  Age: 51 Year
  Sex: Female
  Weight: 58.968 kg

DRUGS (1)
  1. YESCARTA [Suspect]
     Active Substance: AXICABTAGENE CILOLEUCEL
     Indication: Diffuse large B-cell lymphoma
     Route: 065
     Dates: start: 20240909, end: 20240909

REACTIONS (6)
  - Demyelination [Not Recovered/Not Resolved]
  - Paralysis [Not Recovered/Not Resolved]
  - Immune effector cell-associated neurotoxicity syndrome [Unknown]
  - Urinary retention [Unknown]
  - Cytokine release syndrome [Recovered/Resolved]
  - Paresis [Unknown]

NARRATIVE: CASE EVENT DATE: 20240916
